FAERS Safety Report 11860135 (Version 1)
Quarter: 2015Q4

REPORT INFORMATION
  Report Type: Report from Study
  Country: CA (occurrence: CA)
  Receive Date: 20151221
  Receipt Date: 20151221
  Transmission Date: 20160305
  Serious: Yes (Other)
  Sender: FDA-Public Use
  Company Number: CA-JNJFOC-20151211535

PATIENT
  Sex: Male
  Weight: 84 kg

DRUGS (1)
  1. REMICADE [Suspect]
     Active Substance: INFLIXIMAB
     Indication: CROHN^S DISEASE
     Route: 042
     Dates: start: 20140625

REACTIONS (2)
  - Discomfort [Recovered/Resolved]
  - Testis cancer [Unknown]
